FAERS Safety Report 5033418-7 (Version None)
Quarter: 2006Q2

REPORT INFORMATION
  Report Type: 
  Country: None (occurrence: None)
  Receive Date: 20060518
  Receipt Date: 20051011
  Transmission Date: 20061013
  Serious: Yes (Other)
  Sender: FDA-Public Use
  Company Number: 2005141344

PATIENT
  Age: 32 Year
  Sex: Female
  Weight: 52.1637 kg

DRUGS (5)
  1. DEPO-PROVERA [Suspect]
     Indication: ILL-DEFINED DISORDER
     Dosage: SEE IMAGE
     Dates: start: 19951011, end: 19951011
  2. DEPO-PROVERA [Suspect]
     Indication: ILL-DEFINED DISORDER
     Dosage: SEE IMAGE
     Dates: start: 20050720, end: 20050720
  3. CRESTOR [Concomitant]
  4. XANAX [Concomitant]
  5. ASPIRIN [Concomitant]

REACTIONS (2)
  - HEADACHE [None]
  - OSTEOPENIA [None]
